FAERS Safety Report 18024396 (Version 1)
Quarter: 2020Q3

REPORT INFORMATION
  Report Type: Spontaneous
  Country: US (occurrence: US)
  Receive Date: 20200714
  Receipt Date: 20200714
  Transmission Date: 20201103
  Serious: Yes (Hospitalization)
  Sender: FDA-Public Use
  Company Number: None

PATIENT
  Age: 73 Year
  Sex: Male
  Weight: 91.9 kg

DRUGS (3)
  1. IBRUTINIB [Suspect]
     Active Substance: IBRUTINIB
     Indication: WALDENSTROM^S MACROGLOBULINAEMIA
     Route: 048
     Dates: start: 20190823
  2. IXAZOMIB [Suspect]
     Active Substance: IXAZOMIB
     Indication: WALDENSTROM^S MACROGLOBULINAEMIA
     Dosage: ?          OTHER FREQUENCY:DAY 1,8,15;?
     Route: 048
     Dates: start: 20190821
  3. NO DRUG NAME [Concomitant]

REACTIONS (4)
  - Pneumonia [None]
  - Tachypnoea [None]
  - Hypoxia [None]
  - Pyrexia [None]

NARRATIVE: CASE EVENT DATE: 20191211
